FAERS Safety Report 12850564 (Version 1)
Quarter: 2016Q4

REPORT INFORMATION
  Report Type: Spontaneous
  Country: PL (occurrence: PL)
  Receive Date: 20161014
  Receipt Date: 20161014
  Transmission Date: 20170207
  Serious: Yes (Hospitalization, Other)
  Sender: FDA-Public Use
  Company Number: PL-ELI_LILLY_AND_COMPANY-PL201610002639

PATIENT
  Age: 14 Year
  Sex: Female

DRUGS (1)
  1. OLANZAPINE. [Suspect]
     Active Substance: OLANZAPINE
     Indication: PRODUCT USED FOR UNKNOWN INDICATION
     Dosage: 150 MG, SINGLE
     Route: 048

REACTIONS (13)
  - Suicide attempt [Recovered/Resolved]
  - Sinus tachycardia [Recovered/Resolved]
  - Rash [Unknown]
  - Pyrexia [Recovering/Resolving]
  - Muscle spasms [Recovering/Resolving]
  - Mydriasis [Unknown]
  - C-reactive protein increased [Unknown]
  - Intentional overdose [Unknown]
  - Seizure [Recovering/Resolving]
  - Coma [Recovered/Resolved]
  - Musculoskeletal stiffness [Recovering/Resolving]
  - Miosis [Recovering/Resolving]
  - Platelet count decreased [Unknown]
